FAERS Safety Report 8178136-1 (Version None)
Quarter: 2012Q1

REPORT INFORMATION
  Report Type: 
  Country: None (occurrence: None)
  Receive Date: 20120126
  Receipt Date: 20111212
  Transmission Date: 20120608
  Serious: Yes (Other)
  Sender: FDA-Public Use
  Company Number: PHEH2011US011378

PATIENT
  Age: 79 Year
  Sex: Male

DRUGS (13)
  1. METFORMIN HCL [Concomitant]
  2. DAPSONE [Concomitant]
  3. PARADRYL (DIPHENHYDRAMINE HYDROCHLORIDE) [Concomitant]
  4. GABAPENTIN [Concomitant]
  5. AFINITOR [Suspect]
     Dosage: 10 MG : 1 DF (5 MG)
     Dates: start: 20110101, end: 20111205
  6. AFINITOR [Suspect]
     Dosage: 10 MG : 1 DF (5 MG)
     Dates: start: 20111209
  7. GLYBURIDE [Concomitant]
  8. SIMVASTATIN [Concomitant]
  9. VITAMIN B COMPLEX CAP [Concomitant]
  10. ASPIRIN [Concomitant]
  11. ROLAIDS [Concomitant]
  12. OTHER INDIGESTION MEDICATIONS [Concomitant]
  13. UROYATAL [Concomitant]

REACTIONS (11)
  - SPLEEN DISORDER [None]
  - SOMNOLENCE [None]
  - EPISTAXIS [None]
  - DIARRHOEA [None]
  - ABDOMINAL PAIN UPPER [None]
  - DYSPNOEA [None]
  - DYSGEUSIA [None]
  - OROPHARYNGEAL BLISTERING [None]
  - NASAL DRYNESS [None]
  - WRONG TECHNIQUE IN DRUG USAGE PROCESS [None]
  - PAIN [None]
